FAERS Safety Report 21783711 (Version 15)
Quarter: 2025Q1

REPORT INFORMATION
  Report Type: Spontaneous
  Country: US (occurrence: US)
  Receive Date: 20221227
  Receipt Date: 20250131
  Transmission Date: 20250409
  Serious: No
  Sender: PFIZER
  Company Number: US-PFIZER INC-PV202200129320

PATIENT
  Age: 84 Year
  Sex: Female
  Weight: 39.92 kg

DRUGS (7)
  1. IBRANCE [Suspect]
     Active Substance: PALBOCICLIB
     Indication: Breast cancer female
     Route: 048
  2. IBRANCE [Suspect]
     Active Substance: PALBOCICLIB
  3. IBRANCE [Suspect]
     Active Substance: PALBOCICLIB
  4. LEVOTHYROXINE [Concomitant]
     Active Substance: LEVOTHYROXINE
     Indication: Hypothyroidism
     Dosage: 75 MG, 1X/DAY
  5. LOVASTATIN [Concomitant]
     Active Substance: LOVASTATIN
     Indication: Blood cholesterol abnormal
     Dosage: 20 MG, 1X/DAY
     Dates: start: 2018
  6. LETROZOLE [Concomitant]
     Active Substance: LETROZOLE
     Dosage: 2.5 MG, 1X/DAY
  7. WARFARIN [Concomitant]
     Active Substance: WARFARIN
     Indication: Thrombosis prophylaxis
     Dates: start: 2023

REACTIONS (27)
  - Neoplasm progression [Unknown]
  - Cough [Unknown]
  - Dyspnoea [Unknown]
  - Onychomadesis [Unknown]
  - Throat irritation [Unknown]
  - Dizziness postural [Unknown]
  - Illness [Unknown]
  - Dizziness [Unknown]
  - Red blood cell count decreased [Unknown]
  - Nail growth abnormal [Unknown]
  - Dyspnoea exertional [Unknown]
  - Lymphocyte count increased [Unknown]
  - Carbon dioxide decreased [Unknown]
  - Blood glucose increased [Unknown]
  - Mean cell volume increased [Unknown]
  - Mean cell haemoglobin increased [Unknown]
  - Mean platelet volume increased [Unknown]
  - Basophil count increased [Unknown]
  - Mean cell haemoglobin concentration increased [Unknown]
  - Blood potassium decreased [Unknown]
  - Immature granulocyte count increased [Unknown]
  - Haemoglobin decreased [Unknown]
  - Haematocrit decreased [Unknown]
  - Neutrophil count decreased [Unknown]
  - White blood cell count decreased [Unknown]
  - Vomiting [Unknown]
  - Nausea [Unknown]
